FAERS Safety Report 19772875 (Version 3)
Quarter: 2021Q3

REPORT INFORMATION
  Report Type: Spontaneous
  Country: NL (occurrence: NL)
  Receive Date: 20210901
  Receipt Date: 20210922
  Transmission Date: 20211014
  Serious: Yes (Hospitalization, Other)
  Sender: FDA-Public Use
  Company Number: NL-AUROBINDO-AUR-APL-2021-037024

PATIENT
  Age: 65 Year
  Sex: Male

DRUGS (3)
  1. RIVAROXABAN [Concomitant]
     Active Substance: RIVAROXABAN
     Indication: PULMONARY EMBOLISM
     Dosage: UNK
     Route: 065
  2. ESOMEPRAZOLE. [Suspect]
     Active Substance: ESOMEPRAZOLE MAGNESIUM
     Indication: PRODUCT USED FOR UNKNOWN INDICATION
     Dosage: 40 MILLIGRAM, ONCE A DAY
     Route: 065
  3. FLUCONAZOL CLARIS [Interacting]
     Active Substance: FLUCONAZOLE
     Indication: OROPHARYNGEAL CANDIDIASIS
     Dosage: UNK
     Route: 065

REACTIONS (17)
  - Confusional state [Recovered/Resolved]
  - Tremor [Recovering/Resolving]
  - Hypokalaemia [Recovering/Resolving]
  - Gastrointestinal disorder [Recovering/Resolving]
  - Electrocardiogram QT prolonged [Recovered/Resolved]
  - Abdominal pain upper [Recovering/Resolving]
  - Metabolic alkalosis [Recovering/Resolving]
  - Nausea [Recovered/Resolved]
  - Asthenia [Recovering/Resolving]
  - Bundle branch block right [Recovering/Resolving]
  - Aphasia [Recovered/Resolved]
  - Vomiting [Recovering/Resolving]
  - Abdominal pain [Recovering/Resolving]
  - Hypocalcaemia [Recovering/Resolving]
  - Hypomagnesaemia [Recovering/Resolving]
  - Drug interaction [Recovering/Resolving]
  - Toxicity to various agents [Recovering/Resolving]
